FAERS Safety Report 10008171 (Version 1)
Quarter: 2014Q1

REPORT INFORMATION
  Report Type: Spontaneous
  Country: US (occurrence: US)
  Receive Date: 20140313
  Receipt Date: 20140313
  Transmission Date: 20141002
  Serious: No
  Sender: FDA-Public Use
  Company Number: US-GILEAD-2013-0071125

PATIENT
  Age: 20 Year
  Sex: Female

DRUGS (3)
  1. LETAIRIS [Suspect]
     Indication: PULMONARY ARTERIAL HYPERTENSION
     Dosage: 5 MG, QD
     Dates: start: 20130118
  2. REVATIO [Concomitant]
  3. REMODULIN [Concomitant]

REACTIONS (1)
  - VIIth nerve paralysis [Recovering/Resolving]
